FAERS Safety Report 26192119 (Version 1)
Quarter: 2025Q4

REPORT INFORMATION
  Report Type: Spontaneous
  Country: CH (occurrence: CH)
  Receive Date: 20251223
  Receipt Date: 20251223
  Transmission Date: 20260118
  Serious: Yes (Hospitalization, Other)
  Sender: PFIZER
  Company Number: None

PATIENT
  Age: 83 Year
  Sex: Male
  Weight: 77 kg

DRUGS (5)
  1. TOVIAZ [Suspect]
     Active Substance: FESOTERODINE FUMARATE
     Indication: Neurogenic bladder
     Dosage: 8 MG, 1X/DAY (FREQ:24 H)
     Route: 048
     Dates: start: 20211117, end: 20251205
  2. PREGABALIN [Suspect]
     Active Substance: PREGABALIN
     Indication: Neuralgia
     Dosage: 100 MG, 1X/DAY (FREQ:24 H)
     Route: 048
     Dates: start: 20250703
  3. CANDESARTAN [Suspect]
     Active Substance: CANDESARTAN
     Indication: Hypertension
     Dosage: 16 MG, 1X/DAY (FREQ:24 H)
     Route: 048
     Dates: start: 2023
  4. TRAMADOL [Suspect]
     Active Substance: TRAMADOL
     Indication: Back pain
     Dosage: 50 MG, AS NEEDED (50 MG, EVERY 12 HRS)
     Route: 048
  5. MIRABEGRON [Suspect]
     Active Substance: MIRABEGRON
     Indication: Neurogenic bladder
     Dosage: 50 MG, 1X/DAY (FREQ:24 H)
     Route: 048
     Dates: start: 20211117

REACTIONS (3)
  - Fall [Recovered/Resolved]
  - Muscular weakness [Unknown]
  - Faecaloma [Recovered/Resolved]

NARRATIVE: CASE EVENT DATE: 20251202
